FAERS Safety Report 13813056 (Version 1)
Quarter: 2017Q3

REPORT INFORMATION
  Report Type: Spontaneous
  Country: ES (occurrence: ES)
  Receive Date: 20170729
  Receipt Date: 20170729
  Transmission Date: 20171127
  Serious: Yes (Other)
  Sender: FDA-Public Use
  Company Number: ES-ACCORD-056537

PATIENT
  Age: 60 Year
  Sex: Male
  Weight: 129 kg

DRUGS (6)
  1. DOXYCYCLINE. [Concomitant]
     Active Substance: DOXYCYCLINE
     Route: 048
     Dates: start: 20170704
  2. AMLODIPINE [Concomitant]
     Active Substance: AMLODIPINE BESYLATE
     Dosage: 1 TABLET EACH 24 HOURS?10 MG
     Dates: start: 20150224
  3. OXALIPLATINO ACCORD 5 MG/ML CONCENTRATE FOR SOLUTION FOR INFUSION [Suspect]
     Active Substance: OXALIPLATIN
     Indication: PRODUCT USED FOR UNKNOWN INDICATION
     Dosage: INFUSION?5 MG/ML
     Route: 042
     Dates: start: 20170704, end: 2017
  4. ENALAPRIL [Concomitant]
     Active Substance: ENALAPRIL
     Route: 048
     Dates: start: 20150817
  5. FOLINIC ACID [Concomitant]
     Active Substance: LEUCOVORIN
  6. OMNIC OCAS 0.4 MG PROLONGED RELEASE TABLETS COATED [Concomitant]
     Dosage: 0.4 MG
     Route: 048
     Dates: start: 20150330

REACTIONS (4)
  - Erythema [Recovered/Resolved]
  - Dizziness [Recovered/Resolved]
  - Hyperhidrosis [Recovered/Resolved]
  - Tachycardia [Recovering/Resolving]

NARRATIVE: CASE EVENT DATE: 20170704
